FAERS Safety Report 6174044-6 (Version None)
Quarter: 2009Q2

REPORT INFORMATION
  Report Type: 
  Country: None (occurrence: None)
  Receive Date: 20090430
  Receipt Date: 20080228
  Transmission Date: 20091009
  Serious: No
  Sender: FDA-Public Use
  Company Number: US-ASTRAZENECA-2008UW04210

PATIENT
  Age: 74 Year
  Sex: Male
  Weight: 90.7 kg

DRUGS (11)
  1. NEXIUM [Suspect]
     Indication: COUGH
     Route: 048
  2. NEXIUM [Suspect]
     Indication: INCREASED UPPER AIRWAY SECRETION
     Route: 048
  3. SIMVASTATIN [Concomitant]
  4. METFORMIN HCL [Concomitant]
  5. LEVOTHYROXINE SODIUM [Concomitant]
  6. LISINOPRIL [Concomitant]
  7. CITALOPRAM HYDROBROMIDE [Concomitant]
  8. ALBUTEROL [Concomitant]
  9. ADVAIR HFA [Concomitant]
  10. LEXAPRO [Concomitant]
  11. NASONEX [Concomitant]

REACTIONS (3)
  - COUGH [None]
  - DRUG INEFFECTIVE [None]
  - INCREASED UPPER AIRWAY SECRETION [None]
